FAERS Safety Report 6610998-9 (Version None)
Quarter: 2010Q1

REPORT INFORMATION
  Report Type: 
  Country: None (occurrence: None)
  Receive Date: 20100222
  Receipt Date: 20100205
  Transmission Date: 20100710
  Serious: Yes (Hospitalization)
  Sender: FDA-Public Use
  Company Number: ACO_0035_2004

PATIENT
  Age: 70 Year
  Sex: Female
  Weight: 54.7 kg

DRUGS (10)
  1. TIZANIDINE HCL [Suspect]
     Indication: PAIN IN EXTREMITY
     Dosage: (3 MG, PER DAY ORAL)
     Route: 048
  2. FLUVOXAMINE MALEATE [Suspect]
     Indication: DEPRESSION
     Dosage: (50 MG, PER DAY ORAL), (100 MG, PER DAY ORAL), (150 MG, PER DAY ORAL)
     Route: 048
  3. ZOPICLONE [Concomitant]
  4. FLUNITRAZEPAM [Concomitant]
  5. BENIDIPINE [Concomitant]
  6. CANDESARTAN [Concomitant]
  7. TICLOPIDINE HCL [Concomitant]
  8. FAMOTIDINE [Concomitant]
  9. BEZAFIBRATE [Concomitant]
  10. CARBAMAZEPINE [Concomitant]

REACTIONS (7)
  - ANURIA [None]
  - BODY TEMPERATURE DECREASED [None]
  - DRY MOUTH [None]
  - DYSURIA [None]
  - GAIT DISTURBANCE [None]
  - HEART RATE DECREASED [None]
  - THIRST [None]
